FAERS Safety Report 9454095 (Version 3)
Quarter: 2013Q4

REPORT INFORMATION
  Report Type: Spontaneous
  Country: US (occurrence: None)
  Receive Date: 20130807
  Receipt Date: 20131227
  Transmission Date: 20140711
  Serious: Yes (Congenital Anomaly)
  Sender: FDA-Public Use
  Company Number: SYM-2013-07780

PATIENT
  Age: 0 Day
  Sex: Female

DRUGS (1)
  1. BUPROPION ER [Suspect]
     Indication: PRODUCT USED FOR UNKNOWN INDICATION
     Route: 064
     Dates: start: 200904, end: 20100212

REACTIONS (10)
  - Ventricular septal defect [None]
  - Head deformity [None]
  - Supraventricular tachycardia [None]
  - Atrial septal defect [None]
  - Maternal drugs affecting foetus [None]
  - Cardiac arrest [None]
  - Caesarean section [None]
  - Aspiration [None]
  - Feeding disorder neonatal [None]
  - Vocal cord paralysis [None]
